FAERS Safety Report 25803969 (Version 1)
Quarter: 2025Q3

REPORT INFORMATION
  Report Type: Spontaneous
  Country: US (occurrence: US)
  Receive Date: 20250915
  Receipt Date: 20250915
  Transmission Date: 20251020
  Serious: No
  Sender: BIOMARIN
  Company Number: US-SA-2025SA268447

PATIENT
  Age: 3 Year
  Sex: Male

DRUGS (1)
  1. LARONIDASE [Suspect]
     Active Substance: LARONIDASE
     Indication: Mucopolysaccharidosis I
     Dosage: 8.7 TOTAL, QW
     Dates: start: 20240411

REACTIONS (4)
  - Erythema [Recovered/Resolved]
  - Urticaria [Recovered/Resolved]
  - Cough [Recovered/Resolved]
  - Drug specific antibody present [Unknown]

NARRATIVE: CASE EVENT DATE: 20250101
